FAERS Safety Report 8242694-9 (Version None)
Quarter: 2012Q1

REPORT INFORMATION
  Report Type: 
  Country: None (occurrence: None)
  Receive Date: 20120314
  Receipt Date: 20101212
  Transmission Date: 20120608
  Serious: No
  Sender: FDA-Public Use
  Company Number: PHHY2010US88219

PATIENT
  Age: 19 Year
  Sex: Male

DRUGS (2)
  1. FANAPT [Suspect]
     Dosage: TWICE A DAY, ORAL
     Route: 048
  2. LEXAPRO [Concomitant]

REACTIONS (2)
  - ERECTILE DYSFUNCTION [None]
  - MALE ORGASMIC DISORDER [None]
